FAERS Safety Report 4495978-4 (Version None)
Quarter: 2004Q4

REPORT INFORMATION
  Report Type: 
  Country: None (occurrence: None)
  Receive Date: 20041108
  Receipt Date: 20041027
  Transmission Date: 20050328
  Serious: Yes (Other)
  Sender: FDA-Public Use
  Company Number: PHEH2004US11575

PATIENT
  Age: 62 Year
  Sex: Female
  Weight: 40 kg

DRUGS (6)
  1. ZELNORM [Suspect]
     Indication: IRRITABLE BOWEL SYNDROME
     Dosage: 6 MG, BID
     Route: 048
     Dates: start: 20040930, end: 20041013
  2. ALBUTEROL [Concomitant]
     Dosage: UNK, PRN
  3. ZANTAC [Concomitant]
     Dosage: 150 MG, TID
  4. ULTRACET [Concomitant]
     Dosage: UNK, BID
  5. SPIRIVA ^BOEHRINGER INGELHEIM^ [Concomitant]
     Dosage: UNK, QD
  6. PRILOSEC [Concomitant]
     Dosage: 20 MG, QD
     Route: 048
     Dates: start: 20040930

REACTIONS (6)
  - BIOPSY COLON ABNORMAL [None]
  - COLITIS ISCHAEMIC [None]
  - COLONOSCOPY ABNORMAL [None]
  - INTESTINAL POLYP [None]
  - LARGE INTESTINAL ULCER [None]
  - POLYPECTOMY [None]
